FAERS Safety Report 23848419 (Version 1)
Quarter: 2024Q2

REPORT INFORMATION
  Report Type: Spontaneous
  Country: TW (occurrence: TW)
  Receive Date: 20240513
  Receipt Date: 20240513
  Transmission Date: 20240716
  Serious: Yes (Hospitalization)
  Sender: FDA-Public Use
  Company Number: TW-DSJP-DSJ-2024-119960

PATIENT
  Age: 92 Year
  Sex: Male
  Weight: 62 kg

DRUGS (1)
  1. EDOXABAN [Suspect]
     Active Substance: EDOXABAN
     Indication: Atrial fibrillation
     Dosage: 15 MG, QD
     Route: 048

REACTIONS (5)
  - Anaemia [Recovering/Resolving]
  - Melaena [Unknown]
  - Chest discomfort [Recovering/Resolving]
  - Acute coronary syndrome [Unknown]
  - Dyspnoea [Recovering/Resolving]
